FAERS Safety Report 8624961-X (Version None)
Quarter: 2012Q3

REPORT INFORMATION
  Report Type: 
  Country: None (occurrence: None)
  Receive Date: 20120827
  Receipt Date: 20120806
  Transmission Date: 20120928
  Serious: Yes (Hospitalization, Other)
  Sender: FDA-Public Use
  Company Number: US-AMGEN-USASP2011025454

PATIENT
  Age: 12 Year
  Sex: Male
  Weight: 95.9 kg

DRUGS (20)
  1. NPLATE [Suspect]
  2. CALCIUM + VITAMIN D [Concomitant]
  3. LOVAZA [Concomitant]
  4. MAGNESIUM                          /00430401/ [Concomitant]
  5. EYE DROPS [Concomitant]
  6. NPLATE [Suspect]
  7. CHOLECALCIFEROL [Concomitant]
  8. NPLATE [Suspect]
  9. PREDNISONE TAB [Concomitant]
  10. PRILOSEC [Concomitant]
  11. MICAFUNGIN [Concomitant]
  12. NPLATE [Suspect]
     Indication: IDIOPATHIC THROMBOCYTOPENIC PURPURA
     Dosage: 485 MUG, QWK
     Dates: start: 20110201
  13. NPLATE [Suspect]
  14. CELLCEPT [Concomitant]
     Dosage: 1000 MG, BID
     Route: 048
  15. ACYCLOVIR [Concomitant]
  16. PENICILLIN [Concomitant]
  17. NPLATE [Suspect]
  18. PERMANGANATE POTASSIUM [Concomitant]
  19. NPLATE [Suspect]
  20. MULTIVITAMIN                       /00097801/ [Concomitant]

REACTIONS (14)
  - DIARRHOEA [None]
  - TINEA CRURIS [None]
  - HYPOMAGNESAEMIA [None]
  - GRAFT VERSUS HOST DISEASE [None]
  - STAPHYLOCOCCAL BACTERAEMIA [None]
  - OSTEONECROSIS [None]
  - ODYNOPHAGIA [None]
  - TRANSAMINASES INCREASED [None]
  - PYREXIA [None]
  - RHINOVIRUS INFECTION [None]
  - HYPOKALAEMIA [None]
  - METAPNEUMOVIRUS INFECTION [None]
  - GASTRITIS [None]
  - HYPERLIPIDAEMIA [None]
